FAERS Safety Report 9889647 (Version 9)
Quarter: 2014Q3

REPORT INFORMATION
  Report Type: Spontaneous
  Country: BE (occurrence: BE)
  Receive Date: 20140211
  Receipt Date: 20140710
  Transmission Date: 20150326
  Serious: Yes (Hospitalization)
  Sender: FDA-Public Use
  Company Number: BE-009507513-1311BEL007725

PATIENT
  Age: 71 Year
  Sex: Male

DRUGS (8)
  1. VICTRELIS [Suspect]
     Active Substance: BOCEPREVIR
     Indication: HEPATITIS C
     Dosage: TOTAL DAILY DOSE 2400MG, TID
     Route: 048
     Dates: start: 20131214, end: 20140126
  2. VICTRELIS [Suspect]
     Active Substance: BOCEPREVIR
     Dosage: TOTAL DAILY DOSE 2400MG, TID
     Route: 048
     Dates: start: 20140201, end: 20140607
  3. REBETOL [Suspect]
     Active Substance: RIBAVIRIN
     Dosage: TOTAL DAILY DOSE 600MG, BID
     Route: 048
     Dates: start: 20140207, end: 20140607
  4. PEGINTRON [Suspect]
     Active Substance: PEGINTERFERON ALFA-2B
     Dosage: TOTAL DAILY DOSE 100UG/0.5ML, QW
     Route: 058
     Dates: start: 20140201, end: 20140525
  5. REBETOL [Suspect]
     Active Substance: RIBAVIRIN
     Indication: HEPATITIS C
     Dosage: TOTAL DAILY DOSE 1000MG, BID
     Route: 048
     Dates: start: 20131117, end: 20140126
  6. REBETOL [Suspect]
     Active Substance: RIBAVIRIN
     Dosage: TOTAL DAILY DOSE 1000MG, BID
     Route: 048
     Dates: start: 20140201, end: 20140206
  7. DAFALGAN [Concomitant]
     Active Substance: ACETAMINOPHEN
     Dosage: UNK
     Dates: start: 2014
  8. PEGINTRON [Suspect]
     Active Substance: PEGINTERFERON ALFA-2B
     Indication: HEPATITIS C
     Dosage: TOTAL DAILY DOSE 100UG/0.5ML, WEEKLY
     Route: 058
     Dates: start: 20131115, end: 20140125

REACTIONS (24)
  - Incorrect dose administered [Unknown]
  - Asthenia [Unknown]
  - Vomiting [Recovering/Resolving]
  - Injection site erythema [Recovered/Resolved]
  - Dry skin [Not Recovered/Not Resolved]
  - Scratch [Unknown]
  - Mood swings [Unknown]
  - Dyspnoea [Not Recovered/Not Resolved]
  - Affective disorder [Unknown]
  - Somnolence [Not Recovered/Not Resolved]
  - Pneumonia [Recovered/Resolved]
  - Hot flush [Recovering/Resolving]
  - Fatigue [Not Recovered/Not Resolved]
  - Anaemia [Recovering/Resolving]
  - Urinary bladder polyp [Recovering/Resolving]
  - Dizziness [Recovering/Resolving]
  - Weight decreased [Recovering/Resolving]
  - Fall [Unknown]
  - Nausea [Recovering/Resolving]
  - Bladder polypectomy [Recovering/Resolving]
  - Decreased appetite [Recovering/Resolving]
  - Haematuria [Recovering/Resolving]
  - Joint swelling [Recovered/Resolved]
  - Pruritus [Not Recovered/Not Resolved]

NARRATIVE: CASE EVENT DATE: 2013
